FAERS Safety Report 17919897 (Version 2)
Quarter: 2020Q3

REPORT INFORMATION
  Report Type: Report from Study
  Country: CH (occurrence: CH)
  Receive Date: 20200620
  Receipt Date: 20200702
  Transmission Date: 20201103
  Serious: Yes (Death, Hospitalization, Other)
  Sender: FDA-Public Use
  Company Number: CH-AMGEN-CHENI2020097813

PATIENT
  Age: 71 Year
  Sex: Male

DRUGS (18)
  1. ERENUMAB [Suspect]
     Active Substance: ERENUMAB
     Indication: MIGRAINE
     Dosage: 140 MILLIGRAM
     Route: 065
     Dates: start: 20190412, end: 20200312
  2. ESCITALOPRAM [Suspect]
     Active Substance: ESCITALOPRAM OXALATE
     Indication: PRODUCT USED FOR UNKNOWN INDICATION
     Dosage: 10 MG, (0.5?0.5?0?1 A DAY
     Route: 048
  3. TOPAMAX [Concomitant]
     Active Substance: TOPIRAMATE
     Dosage: 50 MG, 1 CAPSULE AT 08:00, 1 CAPSULE AT 14:00, 1 CAPSULE AT 20:00, 20:00
     Route: 048
  4. SUPRADYN ENERGY [Concomitant]
     Active Substance: MINERALS\VITAMINS
     Indication: PRODUCT USED FOR UNKNOWN INDICATION
     Dosage: UNK UKN
     Route: 048
  5. QUETIAPINE SANDOZ [Suspect]
     Active Substance: QUETIAPINE
     Indication: PRODUCT USED FOR UNKNOWN INDICATION
     Dosage: 200 MG, 1?0?0?1 A DAY
     Route: 048
  6. BELOC ZOK [Concomitant]
     Active Substance: METOPROLOL SUCCINATE
     Indication: PRODUCT USED FOR UNKNOWN INDICATION
     Dosage: 25 MG, 1?0?0?0 A DAY
     Route: 048
  7. BRILIQUE [Concomitant]
     Active Substance: TICAGRELOR
     Indication: PRODUCT USED FOR UNKNOWN INDICATION
     Dosage: 90 MG, 1?0?0?1 A DAY
     Route: 048
  8. LISINOPRIL AXAPHARM [Concomitant]
     Indication: PRODUCT USED FOR UNKNOWN INDICATION
     Dosage: 20 MG, 1?0?0?0 A DAY
     Route: 048
  9. TOPAMAX [Concomitant]
     Active Substance: TOPIRAMATE
     Indication: PRODUCT USED FOR UNKNOWN INDICATION
     Dosage: 25 MG, 1 TABLET AT 08:00, 1 TABLET AT 14:00, 1 TABLET AT 20:00, 20:00
     Route: 048
  10. METFIN [Suspect]
     Active Substance: METFORMIN HYDROCHLORIDE
     Indication: BLOOD GLUCOSE
     Dosage: 500 MG, 1?0?1?0 A DAY
     Route: 048
  11. GEVILON [Concomitant]
     Active Substance: GEMFIBROZIL
     Indication: PRODUCT USED FOR UNKNOWN INDICATION
     Dosage: 900 MG, 1?0?0?1 A DAY
     Route: 048
  12. ATORVASTATIN SANDOZ [Suspect]
     Active Substance: ATORVASTATIN
     Indication: PRODUCT USED FOR UNKNOWN INDICATION
     Dosage: 40 MG, (0?0?1?0 A DAY)
     Route: 048
  13. TRANXILIUM [Concomitant]
     Active Substance: CLORAZEPATE DIPOTASSIUM
     Indication: PRODUCT USED FOR UNKNOWN INDICATION
     Dosage: 5 MG
     Route: 048
  14. ASPIRIN. [Concomitant]
     Active Substance: ASPIRIN
     Indication: PRODUCT USED FOR UNKNOWN INDICATION
     Dosage: 100 MG, 1?0?0?0 A DAY
     Route: 048
  15. MYDOCALM [LIDOCAINE HYDROCHLORIDE;TOLPERISONE HYDROCHLORIDE] [Concomitant]
     Indication: PRODUCT USED FOR UNKNOWN INDICATION
     Dosage: 150 MG, 0.5?0?0?0.5 A DAY
     Route: 048
  16. DAFALGAN [Concomitant]
     Active Substance: ACETAMINOPHEN
     Indication: PRODUCT USED FOR UNKNOWN INDICATION
     Dosage: 500 MG, 1 TABLET EVERY 4 HOURS, MAX/24H: 4 TABLETS
     Route: 048
  17. IMIGRAN [SUMATRIPTAN SULFATE] [Concomitant]
     Indication: PRODUCT USED FOR UNKNOWN INDICATION
     Dosage: 0.5 ML, 1 AMPOULE EVERY 8 HOURS, MAX/24H: 3 AMPOULES
     Route: 058
  18. CLEXANE [Concomitant]
     Active Substance: ENOXAPARIN SODIUM
     Indication: PRODUCT USED FOR UNKNOWN INDICATION
     Dosage: 40 MG, 0?1?0?0 A DAY
     Route: 058

REACTIONS (13)
  - Confusional state [Fatal]
  - Depressed level of consciousness [Fatal]
  - Tachypnoea [Fatal]
  - Epistaxis [Unknown]
  - Gait disturbance [Unknown]
  - Balance disorder [Unknown]
  - Face injury [Unknown]
  - Acute myocardial infarction [Unknown]
  - Fall [Unknown]
  - Constipation [Recovering/Resolving]
  - Pyrexia [Fatal]
  - COVID-19 [Fatal]
  - Cerebral haemorrhage [Unknown]

NARRATIVE: CASE EVENT DATE: 202003
